FAERS Safety Report 15604895 (Version 1)
Quarter: 2018Q4

REPORT INFORMATION
  Report Type: Spontaneous
  Country: EG (occurrence: EG)
  Receive Date: 20181111
  Receipt Date: 20181111
  Transmission Date: 20190205
  Serious: Yes (Hospitalization, Other)
  Sender: FDA-Public Use
  Company Number: EG-BAXTER-2018BAX027197

PATIENT
  Age: 49 Year
  Sex: Female

DRUGS (4)
  1. TAXOTERE [Suspect]
     Active Substance: DOCETAXEL
     Indication: SQUAMOUS CELL BREAST CARCINOMA
     Dosage: UNDER ADJUVANT CHEMOTHERAPY 75MG/M2 X4  RECYCLE/21 DAYS
     Route: 065
     Dates: end: 201606
  2. G-CSF [Concomitant]
     Active Substance: GRANULOCYTE COLONY-STIMULATING FACTOR NOS
     Indication: PROPHYLACTIC CHEMOTHERAPY
     Route: 065
  3. ENDOXAN 1G [Suspect]
     Active Substance: CYCLOPHOSPHAMIDE
     Indication: SQUAMOUS CELL BREAST CARCINOMA
     Dosage: UNDER ADJUVANT CHEMOTHERAPY WITH 600 MG/M2 X4  RECYCLE/ 21 DAYS
     Route: 065
     Dates: end: 201606
  4. ADRIAMYCIN [Suspect]
     Active Substance: DOXORUBICIN HYDROCHLORIDE
     Indication: SQUAMOUS CELL BREAST CARCINOMA
     Dosage: UNDER ADJUVANT CHEMOTHERAPY WITH 50 MG/M2 X4  RECYCLE/ 21 DAYS
     Route: 065
     Dates: end: 201606

REACTIONS (5)
  - Haematotoxicity [Recovered/Resolved]
  - Neuropathy peripheral [Recovered/Resolved]
  - Mucosal inflammation [Recovered/Resolved]
  - Febrile neutropenia [Recovered/Resolved]
  - Fatigue [Recovered/Resolved]
